FAERS Safety Report 4775796-X (Version None)
Quarter: 2005Q3

REPORT INFORMATION
  Report Type: 
  Country: None (occurrence: None)
  Receive Date: 20050922
  Receipt Date: 20050920
  Transmission Date: 20060218
  Serious: Yes (Death)
  Sender: FDA-Public Use
  Company Number: 2005AC01406

PATIENT
  Age: 40 Year

DRUGS (3)
  1. QUETIAPINE FUMARATE [Suspect]
     Dosage: ROUTE: ASPIRATION
  2. ESCITALOPRAM OXALATE [Suspect]
     Route: 048
  3. CLONAZEPAM [Suspect]
     Route: 048

REACTIONS (1)
  - DEATH [None]
